FAERS Safety Report 15301424 (Version 3)
Quarter: 2018Q4

REPORT INFORMATION
  Report Type: Spontaneous
  Country: DE (occurrence: DE)
  Receive Date: 20180821
  Receipt Date: 20180921
  Transmission Date: 20190204
  Serious: Yes (Hospitalization)
  Sender: FDA-Public Use
  Company Number: DE-ELI_LILLY_AND_COMPANY-DE201808007805

PATIENT
  Age: 61 Year
  Sex: Male
  Weight: 66.5 kg

DRUGS (4)
  1. HUMULIN N [Suspect]
     Active Substance: INSULIN HUMAN
     Indication: BLOOD GLUCOSE INCREASED
     Dosage: 0.4 ML, DAILY
     Route: 042
     Dates: start: 20180703, end: 201808
  2. CERNEVIT [Suspect]
     Active Substance: VITAMINS
     Indication: PARENTERAL NUTRITION
     Dosage: 10 ML, DAILY
     Route: 042
     Dates: start: 20171107, end: 201808
  3. SMOFKABIVEN CENTRAL ELECTROLYT FREE [Suspect]
     Active Substance: AMINO ACIDS\DEXTROSE\SOYBEAN OIL
     Indication: PARENTERAL NUTRITION
     Dosage: 1970 ML, DAILY
     Route: 042
     Dates: start: 20180703, end: 201808
  4. ADDEL TRACE [Suspect]
     Active Substance: ELECTROLYTES NOS\MINERALS
     Indication: PARENTERAL NUTRITION
     Dosage: 10 ML, DAILY
     Route: 042
     Dates: start: 20171107, end: 201808

REACTIONS (2)
  - Vascular device infection [Unknown]
  - Pain in extremity [Unknown]

NARRATIVE: CASE EVENT DATE: 201808
